FAERS Safety Report 4990808-6 (Version None)
Quarter: 2006Q2

REPORT INFORMATION
  Report Type: 
  Country: None (occurrence: None)
  Receive Date: 20060428
  Receipt Date: 20060421
  Transmission Date: 20061013
  Serious: Yes (Hospitalization)
  Sender: FDA-Public Use
  Company Number: ST-2006-008996

PATIENT
  Age: 67 Year
  Sex: Male

DRUGS (5)
  1. OLMETEC [Suspect]
     Indication: HYPERTENSION
     Dosage: 10 MG DAILY PO
     Route: 048
     Dates: start: 20050517, end: 20060324
  2. ALLOPURINOL [Concomitant]
  3. MEVALOTIN [Concomitant]
  4. AMLODIN [Concomitant]
  5. URALYT-U [Concomitant]

REACTIONS (4)
  - DIZZINESS [None]
  - NAUSEA [None]
  - TREMOR [None]
  - VISION BLURRED [None]
